FAERS Safety Report 15435566 (Version 2)
Quarter: 2018Q4

REPORT INFORMATION
  Report Type: Spontaneous
  Country: IT (occurrence: IT)
  Receive Date: 20180927
  Receipt Date: 20181001
  Transmission Date: 20190204
  Serious: Yes (Other)
  Sender: FDA-Public Use
  Company Number: IT-MYLANLABS-2018M1070031

PATIENT
  Age: 46 Year
  Sex: Male

DRUGS (11)
  1. CEFOXITIN [Suspect]
     Active Substance: CEFOXITIN SODIUM
     Indication: MENINGITIS
     Dosage: 12 G, QD (3 G FOUR TIMES DAILY)
  2. CLARITHROMYCIN. [Concomitant]
     Active Substance: CLARITHROMYCIN
     Dosage: UNK
  3. IMIPENEM AND CILASTATIN SODIUM [Suspect]
     Active Substance: CILASTATIN SODIUM\IMIPENEM
     Indication: MENINGITIS
     Dosage: UNK
  4. CEFOXITIN [Suspect]
     Active Substance: CEFOXITIN SODIUM
     Indication: MYCOBACTERIUM ABSCESSUS INFECTION
  5. LINEZOLID. [Suspect]
     Active Substance: LINEZOLID
     Indication: MYCOBACTERIUM ABSCESSUS INFECTION
  6. AMIKACIN. [Concomitant]
     Active Substance: AMIKACIN
     Indication: MENINGITIS
  7. CLARITHROMYCIN. [Concomitant]
     Active Substance: CLARITHROMYCIN
     Indication: MENINGITIS
     Dosage: 1000 MG, QD (500 MG TWO TIMES DAILY)
  8. CLARITHROMYCIN. [Concomitant]
     Active Substance: CLARITHROMYCIN
     Indication: MYCOBACTERIUM ABSCESSUS INFECTION
     Dosage: 500 MG TWO TIMES DAILY
  9. LINEZOLID. [Suspect]
     Active Substance: LINEZOLID
     Indication: MENINGITIS
     Dosage: 1200 MG, QD (600 MG TWO TIMES PER DAY)
  10. IMIPENEM AND CILASTATIN SODIUM [Suspect]
     Active Substance: CILASTATIN SODIUM\IMIPENEM
     Indication: MYCOBACTERIUM ABSCESSUS INFECTION
     Dosage: 2000 MG, QD (500 MG FOUR TIMES DAILY)
  11. AMIKACIN. [Concomitant]
     Active Substance: AMIKACIN
     Indication: MYCOBACTERIUM ABSCESSUS INFECTION
     Dosage: 10 MG/KG SINGLE DOSE DAILY

REACTIONS (4)
  - Thrombocytopenia [Recovering/Resolving]
  - Drug intolerance [Recovering/Resolving]
  - Rash maculo-papular [Recovering/Resolving]
  - Product use in unapproved indication [Unknown]
